FAERS Safety Report 14200305 (Version 1)
Quarter: 2017Q4

REPORT INFORMATION
  Report Type: Spontaneous
  Country: TR (occurrence: TR)
  Receive Date: 20171117
  Receipt Date: 20171117
  Transmission Date: 20180321
  Serious: Yes (Death, Hospitalization)
  Sender: FDA-Public Use
  Company Number: TR-EDENBRIDGE PHARMACEUTICALS, LLC-TR-2017EDE000196

PATIENT
  Age: 54 Year
  Sex: Male

DRUGS (13)
  1. PREDNISOLONE SODIUM PHOSPHATE. [Suspect]
     Active Substance: PREDNISOLONE SODIUM PHOSPHATE
     Indication: ILL-DEFINED DISORDER
     Dosage: 20 MG, QD
  2. SULFADOXINE PYRIMETHAMINE [Concomitant]
     Indication: PROPHYLAXIS
     Dosage: UNK
  3. VALACYCLOVIR                       /01269701/ [Concomitant]
     Indication: PROPHYLAXIS
     Dosage: UNK
  4. RITUXIMAB. [Suspect]
     Active Substance: RITUXIMAB
     Indication: NON-HODGKIN^S LYMPHOMA STAGE III
     Dosage: UNK
  5. NYSTATIN. [Concomitant]
     Active Substance: NYSTATIN
     Indication: PROPHYLAXIS
     Dosage: UNK
  6. TACROLIMUS. [Suspect]
     Active Substance: TACROLIMUS
     Dosage: 2-3 NG/ML
  7. ADRIAMYCIN [Suspect]
     Active Substance: DOXORUBICIN HYDROCHLORIDE
     Indication: NON-HODGKIN^S LYMPHOMA STAGE III
     Dosage: UNK
  8. MYCOPHENOLATE MOFETIL. [Suspect]
     Active Substance: MYCOPHENOLATE MOFETIL
     Indication: ILL-DEFINED DISORDER
     Dosage: 2 G, QD
  9. VINCRISTINE [Suspect]
     Active Substance: VINCRISTINE
     Indication: NON-HODGKIN^S LYMPHOMA STAGE III
     Dosage: UNK
  10. TACROLIMUS. [Suspect]
     Active Substance: TACROLIMUS
     Indication: ILL-DEFINED DISORDER
     Dosage: BLOOD LEVELS BETWEEN 15 AND 20 NG/ML
  11. PREDNISOLONE SODIUM PHOSPHATE. [Suspect]
     Active Substance: PREDNISOLONE SODIUM PHOSPHATE
     Indication: NON-HODGKIN^S LYMPHOMA STAGE III
     Dosage: 5 MG, UNK
  12. CYCLOPHOSPHAMIDE. [Suspect]
     Active Substance: CYCLOPHOSPHAMIDE
     Indication: NON-HODGKIN^S LYMPHOMA STAGE III
     Dosage: UNK
  13. RAPAMYCIN [Suspect]
     Active Substance: SIROLIMUS
     Indication: PRODUCT USED FOR UNKNOWN INDICATION
     Dosage: UNK

REACTIONS (4)
  - Squamous cell carcinoma [Fatal]
  - Post transplant lymphoproliferative disorder [Unknown]
  - Neutropenia [Unknown]
  - Aspergillus infection [Fatal]
